FAERS Safety Report 9632665 (Version 1)
Quarter: 2013Q4

REPORT INFORMATION
  Report Type: Spontaneous
  Country: FR (occurrence: FR)
  Receive Date: 20131018
  Receipt Date: 20131018
  Transmission Date: 20140711
  Serious: Yes (Hospitalization)
  Sender: FDA-Public Use
  Company Number: FR-BAYER-2013-125162

PATIENT
  Age: 58 Year
  Sex: Female

DRUGS (9)
  1. XARELTO [Suspect]
     Dosage: 10 MG, QD
     Route: 048
     Dates: start: 20130822, end: 20130827
  2. KETOPROFEN (SYSTEMIC FORMULATION) [Interacting]
     Dosage: 2 DF, QD
     Route: 048
     Dates: start: 20130823
  3. OXYCODONE HYDROCHLORIDE [Concomitant]
  4. APROVEL [Concomitant]
  5. EFFEXOR [Concomitant]
  6. LEXOMIL [Concomitant]
  7. EDUCTYL [Concomitant]
  8. ACUPAN [Concomitant]
  9. OXYCONTIN [Concomitant]

REACTIONS (2)
  - Spinal subdural haematoma [Recovered/Resolved with Sequelae]
  - Paraplegia [Not Recovered/Not Resolved]
